FAERS Safety Report 19433177 (Version 1)
Quarter: 2021Q2

REPORT INFORMATION
  Report Type: Spontaneous
  Country: US (occurrence: US)
  Receive Date: 20210618
  Receipt Date: 20210618
  Transmission Date: 20210717
  Serious: Yes (Hospitalization)
  Sender: FDA-Public Use
  Company Number: US-AUROBINDO-AUR-APL-2016-14273

PATIENT
  Age: 72 Year
  Sex: Male
  Weight: 103 kg

DRUGS (12)
  1. LEVETIRACETAM. [Concomitant]
     Active Substance: LEVETIRACETAM
     Indication: MYOCLONUS
     Dosage: UNK
     Route: 065
  2. DIVALPROEX [Interacting]
     Active Substance: DIVALPROEX SODIUM
     Dosage: 30 MICROGRAM, DAILY
     Route: 065
  3. DIVALPROEX [Interacting]
     Active Substance: DIVALPROEX SODIUM
     Dosage: 60 MILLIGRAM/KILOGRAM/DAY
     Route: 065
  4. DIVALPROEX [Suspect]
     Active Substance: DIVALPROEX SODIUM
     Indication: MYOCLONUS
     Dosage: 30 MILLIGRAM/KILOGRAM, DAILY
     Route: 065
  5. DIVALPROEX [Interacting]
     Active Substance: DIVALPROEX SODIUM
     Dosage: BOLUS
     Route: 065
  6. DIVALPROEX [Interacting]
     Active Substance: DIVALPROEX SODIUM
     Dosage: 80 MILLIGRAM/KILOGRAM/DAY
     Route: 065
  7. PROPOFOL. [Suspect]
     Active Substance: PROPOFOL
     Indication: PRODUCT USED FOR UNKNOWN INDICATION
     Dosage: UNK
     Route: 065
  8. DIVALPROEX [Interacting]
     Active Substance: DIVALPROEX SODIUM
  9. DIVALPROEX [Interacting]
     Active Substance: DIVALPROEX SODIUM
     Dosage: 40 MG/KG, MAINTAINENCE DOSE
     Route: 065
  10. DIVALPROEX [Interacting]
     Active Substance: DIVALPROEX SODIUM
     Dosage: MAINTENANCE DOSE
  11. ACETYLSALICYLIC ACID [Interacting]
     Active Substance: ASPIRIN
     Indication: PRODUCT USED FOR UNKNOWN INDICATION
     Dosage: UNK
     Route: 065
  12. DIVALPROEX [Interacting]
     Active Substance: DIVALPROEX SODIUM
     Dosage: 60 MG/KG, UNK
     Route: 065

REACTIONS (5)
  - Hypoalbuminaemia [Unknown]
  - Hyperammonaemia [Unknown]
  - Azotaemia [Unknown]
  - Anticonvulsant drug level increased [Unknown]
  - Drug interaction [Unknown]
